FAERS Safety Report 6049469-X (Version None)
Quarter: 2009Q1

REPORT INFORMATION
  Report Type: 
  Country: None (occurrence: None)
  Receive Date: 20090121
  Receipt Date: 20090107
  Transmission Date: 20090719
  Serious: Yes (Other)
  Sender: FDA-Public Use
  Company Number: B0554044A

PATIENT
  Age: 25 Year
  Sex: Male

DRUGS (1)
  1. PAROXETINE HCL [Suspect]
     Indication: MAJOR DEPRESSION
     Dosage: 20 MG / PER DAY /

REACTIONS (2)
  - HYPOMANIA [None]
  - PSYCHOMOTOR HYPERACTIVITY [None]
